FAERS Safety Report 6041898-3 (Version None)
Quarter: 2009Q1

REPORT INFORMATION
  Report Type: 
  Country: None (occurrence: None)
  Receive Date: 20090116
  Receipt Date: 20090115
  Transmission Date: 20090719
  Serious: Yes (Death)
  Sender: FDA-Public Use
  Company Number: CA-ASTRAZENECA-2009UW01288

PATIENT
  Age: 60 Year
  Sex: Male
  Weight: 100 kg

DRUGS (6)
  1. NEXIUM [Suspect]
     Route: 048
  2. CELEBREX [Concomitant]
  3. DIDRONEL [Concomitant]
     Dosage: 400 MG ETIDRONATE; 1250 CA CARB; 500 CA
  4. PLAQUENIL [Concomitant]
  5. PREDNISONE [Concomitant]
  6. SYNTHROID [Concomitant]

REACTIONS (1)
  - ARRHYTHMIA [None]
